FAERS Safety Report 6427712-2 (Version None)
Quarter: 2009Q4

REPORT INFORMATION
  Report Type: 
  Country: None (occurrence: None)
  Receive Date: 20091105
  Receipt Date: 20091028
  Transmission Date: 20100525
  Serious: Yes (Hospitalization)
  Sender: FDA-Public Use
  Company Number: US-BIOGENIDEC-2009BI014562

PATIENT
  Age: 51 Year
  Sex: Female

DRUGS (2)
  1. AVONEX [Suspect]
     Indication: MULTIPLE SCLEROSIS
     Route: 030
     Dates: start: 20060622
  2. AVONEX [Suspect]
     Route: 030
     Dates: start: 20050101

REACTIONS (7)
  - FALL [None]
  - FRACTURE [None]
  - HUMERUS FRACTURE [None]
  - MULTIPLE SCLEROSIS RELAPSE [None]
  - SEPSIS [None]
  - SYNCOPE [None]
  - URINARY TRACT INFECTION [None]
